FAERS Safety Report 22277746 (Version 6)
Quarter: 2023Q2

REPORT INFORMATION
  Report Type: Spontaneous
  Country: US (occurrence: US)
  Receive Date: 20230503
  Receipt Date: 20230616
  Transmission Date: 20230722
  Serious: No
  Sender: FDA-Public Use
  Company Number: US-GLAXOSMITHKLINE-USCH2023019057

PATIENT
  Age: 51 Year
  Sex: Female

DRUGS (1)
  1. ADVIL LIQUI-GELS [Suspect]
     Active Substance: IBUPROFEN
     Indication: Arthritis
     Dosage: 2 DF
     Dates: start: 20230427, end: 20230427

REACTIONS (4)
  - Tongue discomfort [Unknown]
  - Headache [Unknown]
  - Poor quality product administered [Unknown]
  - Product complaint [Unknown]

NARRATIVE: CASE EVENT DATE: 20230427
